FAERS Safety Report 8277990-2 (Version None)
Quarter: 2012Q2

REPORT INFORMATION
  Report Type: 
  Country: None (occurrence: None)
  Receive Date: 20120412
  Receipt Date: 20120404
  Transmission Date: 20120825
  Serious: Yes (Other)
  Sender: FDA-Public Use
  Company Number: US-PFIZER INC-2012086401

PATIENT
  Age: 63 Year
  Sex: Male
  Weight: 68 kg

DRUGS (11)
  1. LIDOCAINE HYDROCHLORIDE [Suspect]
     Dosage: INCREASED INFUSTION RATE TO 2 MG/MIN AT 2 AM
  2. NOREPINEPHRINE BITARTRATE [Concomitant]
     Dosage: UNK %, UNK
  3. LIDOCAINE HYDROCHLORIDE [Suspect]
     Dosage: AT MIDNIGHT, CONTINUOUS INFUSION 1 MG/MIN
     Route: 042
  4. ASPIRIN [Concomitant]
  5. FUROSEMIDE [Concomitant]
  6. LIDOCAINE HYDROCHLORIDE [Suspect]
     Dosage: AT 1 AM, 1 MORE INTRAVENOUS BOLUS OF 100 MG
     Route: 042
  7. VALSARTAN [Concomitant]
  8. LACTATED RINGER'S [Concomitant]
     Indication: BLOOD PRESSURE
     Dosage: 1.5 L
  9. EPINEPHRINE [Concomitant]
     Dosage: CONTINUOUS INFUSION (2 PG/MIN) WAS 2 HOURS AFTER THE PATIENT'S ARRIVAL IN THE ICU
  10. LIDOCAINE HYDROCHLORIDE [Suspect]
     Indication: ARRHYTHMIA
     Dosage: 100 MG, UNK
     Route: 042
  11. ALBUMIN (HUMAN) [Concomitant]
     Indication: BLOOD PRESSURE
     Dosage: 250 ML OF 5% ALBUMIN

REACTIONS (1)
  - BLINDNESS TRANSIENT [None]
